FAERS Safety Report 11474469 (Version 1)
Quarter: 2015Q3

REPORT INFORMATION
  Report Type: Report from Study
  Country: FR (occurrence: FR)
  Receive Date: 20150908
  Receipt Date: 20150908
  Transmission Date: 20151125
  Serious: No
  Sender: FDA-Public Use
  Company Number: FR-JAZZ-2014-FR-005366

PATIENT
  Age: 34 Year
  Sex: Female
  Weight: 67 kg

DRUGS (11)
  1. IXEL [Concomitant]
     Active Substance: MILNACIPRAN HYDROCHLORIDE
     Indication: PRODUCT USED FOR UNKNOWN INDICATION
     Dosage: UNK
  2. XYREM [Suspect]
     Active Substance: SODIUM OXYBATE
     Dosage: 4.5 G, BID
     Route: 048
     Dates: start: 20140513, end: 2014
  3. XYREM [Suspect]
     Active Substance: SODIUM OXYBATE
     Dosage: UNKNOWN DOSE
     Dates: start: 201408, end: 20140902
  4. LYRICA [Concomitant]
     Active Substance: PREGABALIN
     Indication: PRODUCT USED FOR UNKNOWN INDICATION
     Dosage: UNK
  5. XYREM [Suspect]
     Active Substance: SODIUM OXYBATE
     Indication: CATAPLEXY
     Dosage: 3.25 G, BID
     Route: 048
     Dates: start: 20140415, end: 20140512
  6. EFFEXOR [Concomitant]
     Active Substance: VENLAFAXINE HYDROCHLORIDE
     Indication: PRODUCT USED FOR UNKNOWN INDICATION
     Dosage: UNK
  7. XYREM [Suspect]
     Active Substance: SODIUM OXYBATE
     Dosage: 4.5 G, BID
     Route: 048
     Dates: start: 20140708, end: 20140809
  8. XYREM [Suspect]
     Active Substance: SODIUM OXYBATE
     Dosage: 4.5 G, BID
     Route: 048
     Dates: start: 20140903, end: 20141002
  9. XYREM [Suspect]
     Active Substance: SODIUM OXYBATE
     Indication: NARCOLEPSY
     Dosage: 2.25 G, BID
     Route: 048
     Dates: start: 20131112
  10. XYREM [Suspect]
     Active Substance: SODIUM OXYBATE
     Dosage: UKNOWN DOSE
     Route: 048
     Dates: start: 20141003
  11. RITALINE [Concomitant]
     Active Substance: METHYLPHENIDATE HYDROCHLORIDE
     Indication: PRODUCT USED FOR UNKNOWN INDICATION
     Dosage: UNK

REACTIONS (12)
  - Vertigo [Unknown]
  - Headache [Recovered/Resolved]
  - Libido increased [Recovered/Resolved]
  - Sleep disorder [Recovered/Resolved]
  - Nausea [Unknown]
  - Dizziness [Unknown]
  - Somnambulism [Unknown]
  - Migraine [Recovered/Resolved]
  - Fall [Unknown]
  - Pain [Recovered/Resolved]
  - Vomiting [Unknown]
  - Feeling drunk [Recovered/Resolved]

NARRATIVE: CASE EVENT DATE: 2014
